FAERS Safety Report 6099710-2 (Version None)
Quarter: 2009Q1

REPORT INFORMATION
  Report Type: 
  Country: None (occurrence: None)
  Receive Date: 20090303
  Receipt Date: 20090225
  Transmission Date: 20090719
  Serious: Yes (Other)
  Sender: FDA-Public Use
  Company Number: US-ASTRAZENECA-2009UW05293

PATIENT
  Age: 70 Year
  Sex: Female
  Weight: 70.3 kg

DRUGS (2)
  1. CRESTOR [Suspect]
     Indication: BLOOD CHOLESTEROL INCREASED
     Dosage: CRESTOR 10 MG TWICE A WEEK ON MONDAYS AND THURSDAYS
     Route: 048
     Dates: start: 20080101, end: 20090114
  2. CENTRUM VITAMINS [Concomitant]

REACTIONS (3)
  - FINE MOTOR DELAY [None]
  - MYALGIA [None]
  - PAIN IN EXTREMITY [None]
